FAERS Safety Report 15719852 (Version 1)
Quarter: 2018Q4

REPORT INFORMATION
  Report Type: Spontaneous
  Country: AT (occurrence: AT)
  Receive Date: 20181213
  Receipt Date: 20181213
  Transmission Date: 20190205
  Serious: Yes (Other)
  Sender: FDA-Public Use
  Company Number: AT-PFIZER INC-2018507340

PATIENT
  Age: 65 Year
  Sex: Female
  Weight: 58 kg

DRUGS (10)
  1. ARTHROTEC [Suspect]
     Active Substance: DICLOFENAC SODIUM\MISOPROSTOL
  2. VASONIT [PENTOXIFYLLINE] [Suspect]
     Active Substance: PENTOXIFYLLINE
     Indication: MACULAR DEGENERATION
     Dosage: 400 MG, 2X/DAY,  (1-0-1), PROLONGED RELEASE
     Dates: start: 2018, end: 20181106
  3. SIRDALUD [Concomitant]
     Active Substance: TIZANIDINE
  4. MENCORD [Concomitant]
     Active Substance: OLMESARTAN MEDOXOMIL
  5. EZETIMIBE. [Suspect]
     Active Substance: EZETIMIBE
  6. SIMVASTATIN. [Concomitant]
     Active Substance: SIMVASTATIN
     Dosage: 40 MG, UNK
  7. PRAXITEN [Concomitant]
     Active Substance: OXAZEPAM
  8. EUTHYROX [Concomitant]
     Active Substance: LEVOTHYROXINE SODIUM
  9. EZETROL [Suspect]
     Active Substance: EZETIMIBE
  10. ASPIRIN. [Concomitant]
     Active Substance: ASPIRIN

REACTIONS (9)
  - Skin exfoliation [Recovering/Resolving]
  - Mucosa vesicle [Recovering/Resolving]
  - Tongue blistering [Recovering/Resolving]
  - Discomfort [Recovered/Resolved]
  - Oedema mucosal [Recovering/Resolving]
  - Weight decreased [Recovering/Resolving]
  - Oral mucosal exfoliation [Recovering/Resolving]
  - Tongue discomfort [Recovering/Resolving]
  - Dysphagia [Recovering/Resolving]

NARRATIVE: CASE EVENT DATE: 201808
